FAERS Safety Report 4433195-4 (Version None)
Quarter: 2004Q3

REPORT INFORMATION
  Report Type: 
  Country: None (occurrence: None)
  Receive Date: 20040826
  Receipt Date: 20040817
  Transmission Date: 20050211
  Serious: Yes (Other)
  Sender: FDA-Public Use
  Company Number: PHBS2004CZ10792

PATIENT
  Age: 48 Year
  Sex: Female

DRUGS (1)
  1. LAMISIL [Suspect]
     Indication: NAIL TINEA
     Dosage: 250 MG, QD
     Route: 048
     Dates: start: 20040524

REACTIONS (6)
  - ERYTHEMA [None]
  - EXANTHEM [None]
  - PHARYNGEAL OEDEMA [None]
  - PRURITUS [None]
  - RASH PAPULAR [None]
  - SKIN OEDEMA [None]
